FAERS Safety Report 12947460 (Version 1)
Quarter: 2016Q4

REPORT INFORMATION
  Report Type: Report from Study
  Country: KR (occurrence: KR)
  Receive Date: 20161116
  Receipt Date: 20161116
  Transmission Date: 20170207
  Serious: Yes (Death, Other)
  Sender: FDA-Public Use
  Company Number: KR-OTSUKA-JP-2013-12221

PATIENT
  Age: 77 Year
  Sex: Male

DRUGS (37)
  1. PERINDOPRIL [Concomitant]
     Active Substance: PERINDOPRIL
     Indication: PRODUCT USED FOR UNKNOWN INDICATION
     Dosage: 2 MG, QD
     Route: 048
     Dates: start: 20130416
  2. BLINDED *PLACEBO [Suspect]
     Active Substance: INVESTIGATIONAL PRODUCT
     Dosage: UNK, QD
     Route: 048
     Dates: start: 20130422, end: 20130513
  3. BLINDED TOLVAPTAN [Suspect]
     Active Substance: TOLVAPTAN
     Dosage: UNK, QD
     Route: 048
     Dates: start: 20130422, end: 20130513
  4. BLINDED *PLACEBO [Suspect]
     Active Substance: INVESTIGATIONAL PRODUCT
     Dosage: UNK, QD
     Route: 048
     Dates: start: 20130421, end: 20130421
  5. BLINDED *PLACEBO [Suspect]
     Active Substance: INVESTIGATIONAL PRODUCT
     Dosage: UNK, QD
     Route: 048
     Dates: start: 20130514, end: 20130514
  6. VALSARTAN. [Suspect]
     Active Substance: VALSARTAN
     Indication: PRODUCT USED FOR UNKNOWN INDICATION
     Dosage: UNK
     Route: 065
     Dates: start: 20130417, end: 20130420
  7. PERINDOPRIL [Concomitant]
     Active Substance: PERINDOPRIL
     Dosage: UNK
     Route: 065
     Dates: start: 20130430
  8. LACTULOSE. [Concomitant]
     Active Substance: LACTULOSE
     Dosage: UNK
     Route: 065
     Dates: start: 20130430
  9. ISOSORBIDE DINITRATE. [Concomitant]
     Active Substance: ISOSORBIDE DINITRATE
     Indication: PRODUCT USED FOR UNKNOWN INDICATION
     Dosage: UNK
     Route: 065
     Dates: start: 20130423
  10. ISOSORBIDE DINITRATE. [Concomitant]
     Active Substance: ISOSORBIDE DINITRATE
     Dosage: 80 MG, BID
     Route: 048
     Dates: start: 20130521
  11. QUETIAPINE FUMARATE. [Concomitant]
     Active Substance: QUETIAPINE FUMARATE
     Indication: PRODUCT USED FOR UNKNOWN INDICATION
     Dosage: 12.5 MG, UNK
     Route: 048
     Dates: start: 20130416, end: 20130520
  12. BLINDED *PLACEBO [Suspect]
     Active Substance: INVESTIGATIONAL PRODUCT
     Indication: HYPONATRAEMIA
     Dosage: UNK
     Route: 065
     Dates: start: 20130416
  13. VITAMIN B1 IN COMBINATION WITH VITAMIN B6 AND/OR VITAMIN B12 [Suspect]
     Active Substance: CYANOCOBALAMIN\PYRIDOXINE HYDROCHLORIDE\THIAMINE
     Indication: PRODUCT USED FOR UNKNOWN INDICATION
     Dosage: UNK
     Route: 065
     Dates: start: 20130421, end: 20130421
  14. BISOPROLOL [Concomitant]
     Active Substance: BISOPROLOL
     Indication: PRODUCT USED FOR UNKNOWN INDICATION
     Dosage: 1.25 MG, QD
     Route: 048
     Dates: start: 20130422
  15. BISOPROLOL [Concomitant]
     Active Substance: BISOPROLOL
     Dosage: UNK
     Route: 065
     Dates: start: 20130424
  16. ISOSORBIDE DINITRATE. [Concomitant]
     Active Substance: ISOSORBIDE DINITRATE
     Dosage: 40 MG, PRN
     Route: 048
     Dates: start: 20130424, end: 20130520
  17. BLINDED TOLVAPTAN [Suspect]
     Active Substance: TOLVAPTAN
     Dosage: UNK, QD
     Route: 048
     Dates: start: 20130421, end: 20130421
  18. VALSARTAN AND AMLODIPINE [Suspect]
     Active Substance: AMLODIPINE\VALSARTAN
     Indication: PRODUCT USED FOR UNKNOWN INDICATION
     Dosage: UNK
     Route: 065
     Dates: start: 20130421, end: 20130421
  19. FUROSEMIDE. [Concomitant]
     Active Substance: FUROSEMIDE
     Indication: PRODUCT USED FOR UNKNOWN INDICATION
     Dosage: 40 MG, QD
     Route: 048
     Dates: start: 20130416
  20. WARFARIN SODIUM. [Concomitant]
     Active Substance: WARFARIN SODIUM
     Dosage: 0.5 MG, QD
     Route: 048
     Dates: start: 20130521
  21. LACTULOSE. [Concomitant]
     Active Substance: LACTULOSE
     Indication: CONSTIPATION
     Dosage: UNK
     Route: 065
     Dates: start: 20130416, end: 20130520
  22. PERINDOPRIL [Concomitant]
     Active Substance: PERINDOPRIL
     Dosage: UNK
     Route: 065
     Dates: start: 20130420
  23. DIGOXIN. [Concomitant]
     Active Substance: DIGOXIN
     Indication: PRODUCT USED FOR UNKNOWN INDICATION
     Dosage: 0.125 MG, QD
     Route: 048
     Dates: start: 20130419
  24. DIGOXIN. [Concomitant]
     Active Substance: DIGOXIN
     Dosage: UNK
     Route: 065
     Dates: start: 20130421
  25. BLINDED TOLVAPTAN [Suspect]
     Active Substance: TOLVAPTAN
     Dosage: UNK, QD
     Route: 048
     Dates: start: 20130514, end: 20130514
  26. TRAZODONE [Suspect]
     Active Substance: TRAZODONE HYDROCHLORIDE
     Indication: PRODUCT USED FOR UNKNOWN INDICATION
     Dosage: UNK
     Route: 065
     Dates: start: 20130417, end: 20130420
  27. ZOLPIDEM [Suspect]
     Active Substance: ZOLPIDEM\ZOLPIDEM TARTRATE
     Indication: PRODUCT USED FOR UNKNOWN INDICATION
     Dosage: UNK
     Route: 065
     Dates: start: 20130417, end: 20130420
  28. SPIRONOLACTONE. [Suspect]
     Active Substance: SPIRONOLACTONE
     Indication: PRODUCT USED FOR UNKNOWN INDICATION
     Dosage: UNK
     Route: 065
     Dates: start: 20130421, end: 20130421
  29. POLYSTYRENE SULFONATE [Suspect]
     Active Substance: POLYSTYRENE SULFONIC ACID
     Indication: CONSTIPATION
     Dosage: UNK
     Route: 065
     Dates: start: 20130417, end: 20130420
  30. POLYSTYRENE SULFONATE [Suspect]
     Active Substance: POLYSTYRENE SULFONIC ACID
     Dosage: 30 G, TID
     Route: 048
     Dates: start: 20130423
  31. WARFARIN SODIUM. [Concomitant]
     Active Substance: WARFARIN SODIUM
     Indication: ATRIAL FIBRILLATION
     Dosage: 1.5 MG, QD
     Route: 048
     Dates: start: 20130420, end: 20130520
  32. TAMSULOSIN [Concomitant]
     Active Substance: TAMSULOSIN
     Indication: PRODUCT USED FOR UNKNOWN INDICATION
     Dosage: 0.2 MG, QD
     Route: 048
     Dates: start: 20130430
  33. BLINDED TOLVAPTAN [Suspect]
     Active Substance: TOLVAPTAN
     Indication: HYPONATRAEMIA
     Dosage: UNK
     Route: 065
     Dates: start: 20130416
  34. BLINDED *PLACEBO [Suspect]
     Active Substance: INVESTIGATIONAL PRODUCT
     Indication: HYPOOSMOLAR STATE
     Dosage: UNK, QD
     Route: 048
     Dates: start: 20130417, end: 20130420
  35. POLYSTYRENE SULFONATE [Suspect]
     Active Substance: POLYSTYRENE SULFONIC ACID
     Dosage: UNK
     Route: 065
     Dates: start: 20130420
  36. LACTULOSE. [Concomitant]
     Active Substance: LACTULOSE
     Dosage: 15 ML, QD
     Route: 048
     Dates: start: 20130421
  37. BLINDED TOLVAPTAN [Suspect]
     Active Substance: TOLVAPTAN
     Indication: HYPOOSMOLAR STATE
     Dosage: UNK, QD
     Route: 048
     Dates: start: 20130417, end: 20130420

REACTIONS (4)
  - Hepatotoxicity [Not Recovered/Not Resolved]
  - Urinary tract infection [Fatal]
  - Hypernatraemia [Not Recovered/Not Resolved]
  - Pyuria [None]

NARRATIVE: CASE EVENT DATE: 20130521
